FAERS Safety Report 11620954 (Version 2)
Quarter: 2015Q4

REPORT INFORMATION
  Report Type: Report from Study
  Country: DE (occurrence: DE)
  Receive Date: 20151012
  Receipt Date: 20151102
  Transmission Date: 20160304
  Serious: Yes (Death, Hospitalization)
  Sender: FDA-Public Use
  Company Number: PHHY2015DE122807

PATIENT
  Sex: Male
  Weight: 82 kg

DRUGS (8)
  1. EXJADE [Suspect]
     Active Substance: DEFERASIROX
     Dosage: 250 MG, QD
     Route: 048
     Dates: start: 20120328, end: 20120409
  2. CEFUROXIME. [Concomitant]
     Active Substance: CEFUROXIME
     Indication: PRODUCT USED FOR UNKNOWN INDICATION
     Dosage: UNK UNK, QD
     Route: 065
     Dates: start: 20120301, end: 20120302
  3. EXJADE [Suspect]
     Active Substance: DEFERASIROX
     Indication: MYELODYSPLASTIC SYNDROME
     Dosage: 500 MG, QD
     Route: 048
     Dates: start: 20111207
  4. ALENDRON [Concomitant]
     Indication: PRODUCT USED FOR UNKNOWN INDICATION
     Dosage: 75 OT, QD
     Route: 065
     Dates: start: 20120306
  5. AMLODIPINE [Concomitant]
     Active Substance: AMLODIPINE BESYLATE
     Indication: PRODUCT USED FOR UNKNOWN INDICATION
     Dosage: 10 OT, QD
     Route: 065
     Dates: start: 20120306
  6. EXJADE [Suspect]
     Active Substance: DEFERASIROX
     Dosage: 500 MG, QD
     Route: 048
  7. NEBIVOLOL. [Concomitant]
     Active Substance: NEBIVOLOL
     Indication: PRODUCT USED FOR UNKNOWN INDICATION
     Dosage: 10 MG, QD
     Route: 065
     Dates: start: 20120306
  8. EPROSARTAN [Concomitant]
     Active Substance: EPROSARTAN
     Indication: PRODUCT USED FOR UNKNOWN INDICATION
     Dosage: 600 UNK, QD
     Route: 065
     Dates: start: 20120306

REACTIONS (2)
  - Pneumonia [Recovered/Resolved]
  - Death [Fatal]

NARRATIVE: CASE EVENT DATE: 20130105
